FAERS Safety Report 7504120-4 (Version None)
Quarter: 2011Q2

REPORT INFORMATION
  Report Type: 
  Country: None (occurrence: None)
  Receive Date: 20110401
  Receipt Date: 20110315
  Transmission Date: 20111010
  Serious: No
  Sender: FDA-Public Use
  Company Number: US-004923

PATIENT
  Sex: Male
  Weight: 79.3795 kg

DRUGS (6)
  1. CARVEDILOL [Concomitant]
  2. CALCIUM CARBONATE [Concomitant]
  3. FIRMAGON [Suspect]
     Indication: PROSTATE CANCER
     Dosage: 240 MG 1X SUBCUTANEOUS
     Route: 058
     Dates: start: 20110223, end: 20110223
  4. SIMVASTATIN [Concomitant]
  5. LISINOPRIL [Concomitant]
  6. MULTI-VITAMINS [Concomitant]

REACTIONS (5)
  - INJECTION SITE ERYTHEMA [None]
  - INJECTION SITE SWELLING [None]
  - HYPERSOMNIA [None]
  - HYPERHIDROSIS [None]
  - INJECTION SITE PAIN [None]
